FAERS Safety Report 10946315 (Version 1)
Quarter: 2015Q1

REPORT INFORMATION
  Report Type: Spontaneous
  Country: US (occurrence: None)
  Receive Date: 20150212
  Receipt Date: 20150212
  Transmission Date: 20150721
  Serious: No
  Sender: FDA-Public Use
  Company Number: TPA2011A08553

PATIENT
  Age: 80 Year
  Sex: Female
  Weight: 74.84 kg

DRUGS (12)
  1. LIPITOR [Concomitant]
     Active Substance: ATORVASTATIN CALCIUM
  2. INDAPAMIDE. [Concomitant]
     Active Substance: INDAPAMIDE
  3. ASPIRIN (ACETYLSALICYLIC ACID) [Concomitant]
     Active Substance: ASPIRIN
  4. PEPCID [Concomitant]
     Active Substance: FAMOTIDINE
  5. QUINAPRIL [Concomitant]
     Active Substance: QUINAPRIL\QUINAPRIL HYDROCHLORIDE
  6. LEVOTHYROXINE [Concomitant]
     Active Substance: LEVOTHYROXINE
  7. PLAVIX [Concomitant]
     Active Substance: CLOPIDOGREL BISULFATE
  8. ULORIC [Suspect]
     Active Substance: FEBUXOSTAT
     Indication: GOUT
     Route: 048
     Dates: start: 20111125
  9. PROBENECID. [Concomitant]
     Active Substance: PROBENECID
  10. PREDNISONE. [Concomitant]
     Active Substance: PREDNISONE
  11. LORAZEPAM. [Concomitant]
     Active Substance: LORAZEPAM
  12. PROBENECID/COLCHICINE [Concomitant]

REACTIONS (1)
  - Gout [None]
